FAERS Safety Report 25679483 (Version 1)
Quarter: 2025Q3

REPORT INFORMATION
  Report Type: Report from Study
  Country: BR (occurrence: BR)
  Receive Date: 20250814
  Receipt Date: 20250814
  Transmission Date: 20251020
  Serious: Yes (Other)
  Sender: JOHNSON AND JOHNSON
  Company Number: BR-JNJFOC-20250812565

PATIENT
  Age: 17 Year
  Sex: Male
  Weight: 43 kg

DRUGS (1)
  1. INFLIXIMAB [Suspect]
     Active Substance: INFLIXIMAB
     Indication: Crohn^s disease
     Dosage: 100 MG 3 AMP PERFORM INFUSION ACCORDING TO THE INFLAMMATORY BOWEL DISEASE PROTOCOL SF0.9% 250ML+ 3AM
     Route: 041

REACTIONS (4)
  - Haemorrhage [Unknown]
  - Abdominal pain [Unknown]
  - Product prescribing error [Unknown]
  - Diarrhoea [Unknown]

NARRATIVE: CASE EVENT DATE: 20240101
